FAERS Safety Report 23914848 (Version 1)
Quarter: 2024Q2

REPORT INFORMATION
  Report Type: Spontaneous
  Country: US (occurrence: None)
  Receive Date: 20240527
  Receipt Date: 20240527
  Transmission Date: 20240715
  Serious: No
  Sender: FDA-Public Use
  Company Number: None

PATIENT
  Age: 77 Year
  Sex: Female
  Weight: 102.6 kg

DRUGS (11)
  1. REPATHA [Suspect]
     Active Substance: EVOLOCUMAB
     Indication: Blood cholesterol increased
     Dosage: OTHER QUANTITY : 1 INJECTION(S);?OTHER FREQUENCY : EVERY 2 WEEKS;?
     Route: 058
     Dates: start: 20240315, end: 20240325
  2. METFORMIN [Concomitant]
     Active Substance: METFORMIN HYDROCHLORIDE
  3. BASALGAR INSULIN [Concomitant]
  4. GLIMEPIRIDE [Concomitant]
     Active Substance: GLIMEPIRIDE
  5. LOSARTAN [Concomitant]
     Active Substance: LOSARTAN
  6. CALCIUM TABLETS [Concomitant]
  7. PATADAY [Concomitant]
     Active Substance: OLOPATADINE HYDROCHLORIDE
  8. REFRESH PRESERVATIVE FREE EYE DROPS [Concomitant]
  9. CLOBETASOL [Concomitant]
     Active Substance: CLOBETASOL
  10. METRONIDAZOLE [Concomitant]
     Active Substance: METRONIDAZOLE
  11. ALIGN [Concomitant]
     Active Substance: BIFIDOBACTERIUM LONGUM SUBSP. INFANTIS

REACTIONS (9)
  - Rhinorrhoea [None]
  - Oropharyngeal pain [None]
  - Pruritus [None]
  - Paraesthesia [None]
  - Arthritis [None]
  - Urticaria [None]
  - Blood glucose increased [None]
  - Poor quality sleep [None]
  - Productive cough [None]

NARRATIVE: CASE EVENT DATE: 20240322
